FAERS Safety Report 8833333 (Version 1)
Quarter: 2012Q4

REPORT INFORMATION
  Report Type: 
  Country: US (occurrence: US)
  Receive Date: 20121010
  Receipt Date: 20121010
  Transmission Date: 20130627
  Serious: No
  Sender: FDA-Public Use
  Company Number: US-VERTEX PHARMACEUTICAL INC.-2012-021458

PATIENT
  Age: 68 Year
  Sex: Male
  Weight: 88 kg

DRUGS (3)
  1. VX-950 [Suspect]
     Indication: HEPATITIS C
     Dosage: 750 mg, qd
     Route: 048
     Dates: start: 20120818, end: 20120828
  2. RIBAVIRIN [Concomitant]
     Indication: HEPATITIS C
     Dosage: 600 mg, bid
     Route: 048
     Dates: start: 20120818, end: 20120828
  3. PEGASYS [Suspect]
     Indication: HEPATITIS C
     Dosage: 180 ?g, UNK
     Route: 058
     Dates: start: 20120818, end: 20120828

REACTIONS (6)
  - Depression [Recovered/Resolved]
  - Dyspnoea [Recovered/Resolved]
  - Dysuria [Recovered/Resolved]
  - Dysphagia [Recovered/Resolved]
  - Malaise [Unknown]
  - Asthenia [Recovered/Resolved]
